FAERS Safety Report 17974698 (Version 3)
Quarter: 2020Q4

REPORT INFORMATION
  Report Type: Spontaneous
  Country: US (occurrence: US)
  Receive Date: 20200702
  Receipt Date: 20201013
  Transmission Date: 20210113
  Serious: Yes (Other)
  Sender: FDA-Public Use
  Company Number: US-GILEAD-2020-0476795

PATIENT
  Sex: Female

DRUGS (1)
  1. VIREAD [Suspect]
     Active Substance: TENOFOVIR DISOPROXIL FUMARATE
     Indication: HEPATITIS B
     Dosage: UNK
     Route: 048
     Dates: start: 20120312, end: 20140701

REACTIONS (6)
  - Osteoporosis [Not Recovered/Not Resolved]
  - Renal injury [Unknown]
  - Osteonecrosis [Unknown]
  - Bone density decreased [Unknown]
  - Fracture [Unknown]
  - Bone loss [Unknown]

NARRATIVE: CASE EVENT DATE: 201701
